FAERS Safety Report 22282873 (Version 3)
Quarter: 2023Q2

REPORT INFORMATION
  Report Type: Spontaneous
  Country: US (occurrence: US)
  Receive Date: 20230504
  Receipt Date: 20230509
  Transmission Date: 20230721
  Serious: Yes (Other)
  Sender: FDA-Public Use
  Company Number: US-SANOFI-01599031

PATIENT
  Sex: Female

DRUGS (2)
  1. DUPIXENT [Suspect]
     Active Substance: DUPILUMAB
     Indication: Dermatitis atopic
     Dosage: 300 MG, QOW
     Route: 065
  2. VANICREAM [Suspect]
     Active Substance: TITANIUM DIOXIDE\ZINC OXIDE
     Dosage: UNK

REACTIONS (2)
  - Dermatitis atopic [Unknown]
  - Skin exfoliation [Unknown]
